FAERS Safety Report 14155114 (Version 2)
Quarter: 2017Q4

REPORT INFORMATION
  Report Type: Spontaneous
  Country: KR (occurrence: KR)
  Receive Date: 20171103
  Receipt Date: 20171208
  Transmission Date: 20180321
  Serious: Yes (Other)
  Sender: FDA-Public Use
  Company Number: KR-CONCORDIA PHARMACEUTICALS INC.-E2B_00008469

PATIENT
  Age: 72 Year
  Sex: Female

DRUGS (6)
  1. ASPIRIN. [Concomitant]
     Active Substance: ASPIRIN
     Indication: ANGINA PECTORIS
     Dosage: ASPIRIN
  2. MOXIFLOXACIN 0.5% [Concomitant]
     Active Substance: MOXIFLOXACIN
     Dosage: WITH ONE DROP EACH, FOUR TIMES DAILY
  3. PREDNISOLONE. [Suspect]
     Active Substance: PREDNISOLONE
     Dosage: PREDNISOLONE 1%
     Route: 061
  4. FLUMETHOLONE 0.1% [Suspect]
     Active Substance: FLUOROMETHOLONE
     Dosage: FLUOROMETHOLONE 0.1%
  5. NITROGLYCERIN. [Concomitant]
     Active Substance: NITROGLYCERIN
     Indication: ANGINA PECTORIS
     Dosage: IF NEEDED
  6. VIGAMOX [Concomitant]
     Active Substance: MOXIFLOXACIN HYDROCHLORIDE
     Dosage: 0.5%-MOXIFLOXACIN

REACTIONS (1)
  - Toxic anterior segment syndrome [Unknown]
